FAERS Safety Report 5152903-0 (Version None)
Quarter: 2006Q4

REPORT INFORMATION
  Report Type: 
  Country: None (occurrence: None)
  Receive Date: 20061113
  Receipt Date: 20061113
  Transmission Date: 20070319
  Serious: Yes (Other)
  Sender: FDA-Public Use
  Company Number: None

PATIENT
  Sex: Female
  Weight: 63.5036 kg

DRUGS (2)
  1. TRAVATAN [Suspect]
     Indication: GLAUCOMA
     Dosage: 1 DROP TRAVATAN EACH EYE AM + PM
  2. ALPHAGAN [Suspect]
     Dosage: 1 DROP ALPHAGAN EACH EYE AM + PM

REACTIONS (5)
  - EYE INFLAMMATION [None]
  - EYE PAIN [None]
  - OCULAR HYPERAEMIA [None]
  - VISION BLURRED [None]
  - VISUAL DISTURBANCE [None]
